FAERS Safety Report 13107710 (Version 2)
Quarter: 2017Q1

REPORT INFORMATION
  Report Type: Report from Study
  Country: LK (occurrence: LK)
  Receive Date: 20170112
  Receipt Date: 20170112
  Transmission Date: 20170428
  Serious: Yes (Death)
  Sender: FDA-Public Use
  Company Number: LK-CIPLA LTD.-2017LK00426

PATIENT

DRUGS (2)
  1. AMLODIPINE BESYLATE. [Suspect]
     Active Substance: AMLODIPINE BESYLATE
     Indication: ESSENTIAL HYPERTENSION
     Dosage: 5 MG, QD
     Route: 065
  2. PLACEBO [Suspect]
     Active Substance: UNSPECIFIED INGREDIENT
     Indication: ESSENTIAL HYPERTENSION
     Dosage: UNK, QD
     Route: 065

REACTIONS (1)
  - Acute myocardial infarction [Fatal]
